FAERS Safety Report 17313545 (Version 1)
Quarter: 2020Q1

REPORT INFORMATION
  Report Type: Spontaneous
  Country: US (occurrence: US)
  Receive Date: 20200124
  Receipt Date: 20200124
  Transmission Date: 20200409
  Serious: No
  Sender: FDA-Public Use
  Company Number: US-AUROBINDO-AUR-APL-2019-066256

PATIENT
  Age: 18 Year
  Sex: Female
  Weight: 79.3 kg

DRUGS (1)
  1. LEVONORGESTREL 1.5 MG TABLETS [Suspect]
     Active Substance: LEVONORGESTREL
     Indication: CONTRACEPTION
     Dosage: 1 DOSAGE FORM, (MORNING AFTER)
     Route: 065
     Dates: start: 20190901, end: 20190901

REACTIONS (1)
  - Menstruation delayed [Not Recovered/Not Resolved]
